FAERS Safety Report 15712159 (Version 1)
Quarter: 2018Q4

REPORT INFORMATION
  Report Type: Spontaneous
  Country: FR (occurrence: FR)
  Receive Date: 20181212
  Receipt Date: 20181212
  Transmission Date: 20190205
  Serious: Yes (Disabling)
  Sender: FDA-Public Use
  Company Number: FR-PROVELL PHARMACEUTICALS-2060072

PATIENT
  Age: 58 Year
  Sex: Female

DRUGS (4)
  1. CARDENSIEL [Suspect]
     Active Substance: BISOPROLOL FUMARATE
  2. LEVOTHYROX NF [Suspect]
     Active Substance: LEVOTHYROXINE SODIUM
  3. EUTHYROX [Suspect]
     Active Substance: LEVOTHYROXINE SODIUM
     Indication: AUTOIMMUNE THYROIDITIS
  4. LUTENYL [Concomitant]
     Active Substance: NOMEGESTROL ACETATE

REACTIONS (9)
  - Amnesia [None]
  - Drug intolerance [None]
  - Fatigue [None]
  - Sensory loss [None]
  - Pain [None]
  - Pain in extremity [None]
  - Disability [None]
  - Rheumatic disorder [None]
  - Grip strength decreased [None]

NARRATIVE: CASE EVENT DATE: 201803
